FAERS Safety Report 5838443-1 (Version None)
Quarter: 2008Q3

REPORT INFORMATION
  Report Type: 
  Country: None (occurrence: None)
  Receive Date: 20080806
  Receipt Date: 20080723
  Transmission Date: 20090109
  Serious: Yes (Death)
  Sender: FDA-Public Use
  Company Number: 2008AL004153

PATIENT
  Age: 76 Year
  Sex: Male
  Weight: 79.3795 kg

DRUGS (2)
  1. DIGOXIN [Suspect]
     Dosage: 0.125, DAILY, PO
     Route: 048
  2. LASIX [Concomitant]

REACTIONS (7)
  - CACHEXIA [None]
  - CONDITION AGGRAVATED [None]
  - CRYPTOGENIC CIRRHOSIS [None]
  - DEHYDRATION [None]
  - HEPATIC CIRRHOSIS [None]
  - MULTI-ORGAN FAILURE [None]
  - NAUSEA [None]
